FAERS Safety Report 7791581-9 (Version None)
Quarter: 2011Q3

REPORT INFORMATION
  Report Type: 
  Country: None (occurrence: None)
  Receive Date: 20110930
  Receipt Date: 20110930
  Transmission Date: 20111222
  Serious: Yes (Other)
  Sender: FDA-Public Use
  Company Number: None

PATIENT
  Sex: Female

DRUGS (12)
  1. LORAZEPAM [Concomitant]
  2. ADDERALL 5 [Concomitant]
  3. ADVAIR DISKUS 100/50 [Concomitant]
  4. CYMBALTA [Concomitant]
  5. LEXAPRO [Concomitant]
  6. ZYRTEC [Concomitant]
  7. TRAZODONE HYDROCHLORIDE [Concomitant]
  8. LYRICA [Concomitant]
  9. ABILIFY [Suspect]
     Indication: MAJOR DEPRESSION
     Dosage: 5MG 1/D PO
     Route: 048
     Dates: start: 20100412, end: 20110516
  10. ABILIFY [Suspect]
     Indication: BIPOLAR DISORDER
     Dosage: 5MG 1/D PO
     Route: 048
     Dates: start: 20100412, end: 20110516
  11. TIZANIDINE HCL [Concomitant]
  12. SINGULAIR [Concomitant]

REACTIONS (2)
  - COGNITIVE DISORDER [None]
  - TARDIVE DYSKINESIA [None]
